FAERS Safety Report 9272500 (Version 1)
Quarter: 2013Q2

REPORT INFORMATION
  Report Type: Spontaneous
  Country: US (occurrence: US)
  Receive Date: 20130506
  Receipt Date: 20130506
  Transmission Date: 20140414
  Serious: No
  Sender: FDA-Public Use
  Company Number: US-ASTRAZENECA-2012SE81048

PATIENT
  Sex: Male

DRUGS (6)
  1. PRILOSEC OTC [Suspect]
     Route: 048
  2. PRILOSEC OTC [Suspect]
     Route: 048
  3. GLIPIZIDE [Concomitant]
  4. LOVASTATIN [Concomitant]
  5. CLONIDINE [Concomitant]
  6. HYDROCHLOROTHIAZIDE [Concomitant]

REACTIONS (3)
  - Chest pain [Recovering/Resolving]
  - Condition aggravated [Recovering/Resolving]
  - Feeling hot [Recovering/Resolving]
